FAERS Safety Report 4590617-6 (Version None)
Quarter: 2005Q1

REPORT INFORMATION
  Report Type: 
  Country: None (occurrence: None)
  Receive Date: 20050224
  Receipt Date: 20050214
  Transmission Date: 20050727
  Serious: Yes (Hospitalization)
  Sender: FDA-Public Use
  Company Number: JP-BRISTOL-MYERS SQUIBB COMPANY-12866604

PATIENT
  Age: 47 Year
  Sex: Male

DRUGS (1)
  1. MAXIPIME [Suspect]
     Indication: PHARYNGITIS

REACTIONS (2)
  - ENCEPHALITIS [None]
  - HEPATIC FUNCTION ABNORMAL [None]
